FAERS Safety Report 9115290 (Version 1)
Quarter: 2013Q1

REPORT INFORMATION
  Report Type: Spontaneous
  Country: US (occurrence: US)
  Receive Date: 20130225
  Receipt Date: 20130225
  Transmission Date: 20140127
  Serious: Yes (Hospitalization)
  Sender: FDA-Public Use
  Company Number: US-009507513-1302USA010931

PATIENT
  Sex: Male

DRUGS (9)
  1. JANUVIA [Suspect]
     Dosage: 50 MG, UNK
     Route: 048
     Dates: start: 20130102
  2. VYTORIN [Concomitant]
     Dosage: 10/20 MG
  3. METFORMIN [Concomitant]
  4. AMLODIPINE [Concomitant]
     Dosage: CONCENTRATION:2.5
  5. ACTOSE [Concomitant]
     Dosage: CONCENTRATION:10
  6. LANTUS [Concomitant]
     Dosage: CONCENTRATION:30 UNITS
  7. ASPIRIN [Concomitant]
  8. LISINOPRIL [Concomitant]
     Dosage: LISINOPRIL:20
  9. GLYBURIDE [Concomitant]
     Dosage: 2.5 MG, UNK

REACTIONS (1)
  - Pancreatitis [Unknown]
